FAERS Safety Report 24126193 (Version 1)
Quarter: 2024Q3

REPORT INFORMATION
  Report Type: Spontaneous
  Country: RU (occurrence: RU)
  Receive Date: 20240723
  Receipt Date: 20240723
  Transmission Date: 20241017
  Serious: Yes (Life-Threatening)
  Sender: AMGEN
  Company Number: RU-AMGEN-RUSSP2024142600

PATIENT
  Age: 67 Year
  Sex: Female
  Weight: 84 kg

DRUGS (1)
  1. NPLATE [Suspect]
     Active Substance: ROMIPLOSTIM
     Indication: Immune thrombocytopenia
     Dosage: 250 MICROGRAM, 1 DAY
     Route: 058
     Dates: start: 20240521, end: 20240603

REACTIONS (1)
  - Drug ineffective [Unknown]

NARRATIVE: CASE EVENT DATE: 20240603
